FAERS Safety Report 6507354-0 (Version None)
Quarter: 2009Q4

REPORT INFORMATION
  Report Type: 
  Country: None (occurrence: None)
  Receive Date: 20091221
  Receipt Date: 20091210
  Transmission Date: 20100525
  Serious: Yes (Other)
  Sender: FDA-Public Use
  Company Number: CH-PFIZER INC-2009308307

PATIENT
  Age: 33 Year

DRUGS (1)
  1. CYTOTEC [Suspect]
     Indication: ABORTION
     Dosage: 400 UG, UNK
     Dates: start: 20091104

REACTIONS (2)
  - ABORTION MISSED [None]
  - OFF LABEL USE [None]
